FAERS Safety Report 10655012 (Version 1)
Quarter: 2014Q4

REPORT INFORMATION
  Report Type: Spontaneous
  Country: US (occurrence: None)
  Receive Date: 20141215
  Receipt Date: 20141215
  Transmission Date: 20150529
  Serious: Yes (Disabling)
  Sender: FDA-Public Use
  Company Number: None

PATIENT
  Age: 70 Year
  Sex: Male
  Weight: 72.58 kg

DRUGS (2)
  1. HALDOL [Suspect]
     Active Substance: HALOPERIDOL
     Indication: AGITATION
     Route: 042
     Dates: start: 20141129, end: 20141201
  2. HALDOL [Suspect]
     Active Substance: HALOPERIDOL
     Indication: POST-TRAUMATIC STRESS DISORDER
     Route: 042
     Dates: start: 20141129, end: 20141201

REACTIONS (10)
  - Hostility [None]
  - Thought blocking [None]
  - Anger [None]
  - Post-traumatic stress disorder [None]
  - Condition aggravated [None]
  - Tardive dyskinesia [None]
  - Derealisation [None]
  - Agitation [None]
  - Asthenia [None]
  - Disorientation [None]

NARRATIVE: CASE EVENT DATE: 20141129
